FAERS Safety Report 19786228 (Version 1)
Quarter: 2021Q3

REPORT INFORMATION
  Report Type: Spontaneous
  Country: NL (occurrence: NL)
  Receive Date: 20210903
  Receipt Date: 20210903
  Transmission Date: 20211014
  Serious: Yes (Other)
  Sender: FDA-Public Use
  Company Number: NL-PFIZER INC-2021409238

PATIENT
  Age: 20 Year
  Sex: Female
  Weight: 63 kg

DRUGS (2)
  1. ASTRAZENECA COVID?19 VACCINE [Suspect]
     Active Substance: AZD-1222
     Indication: COVID-19 IMMUNISATION
     Dosage: DOSE NUMBER UNKNOWN, SINGLE
     Dates: start: 20210220, end: 20210220
  2. DOXYCYCLINE HYCLATE. [Suspect]
     Active Substance: DOXYCYCLINE HYCLATE
     Dosage: 1X/DAY, 1 PIECE
     Dates: start: 20210128

REACTIONS (10)
  - Vaccination site swelling [Recovering/Resolving]
  - Arthralgia [Recovered/Resolved]
  - Vaccination site inflammation [Recovering/Resolving]
  - Myalgia [Recovered/Resolved]
  - Vaccination site pain [Recovering/Resolving]
  - Headache [Recovering/Resolving]
  - Chills [Recovered/Resolved]
  - Malaise [Recovering/Resolving]
  - Fatigue [Not Recovered/Not Resolved]
  - Pyrexia [Recovered/Resolved]

NARRATIVE: CASE EVENT DATE: 20210220
